FAERS Safety Report 4561515-9 (Version None)
Quarter: 2005Q1

REPORT INFORMATION
  Report Type: 
  Country: None (occurrence: None)
  Receive Date: 20050121
  Receipt Date: 20040309
  Transmission Date: 20050727
  Serious: Yes (Hospitalization)
  Sender: FDA-Public Use
  Company Number: F01200400481

PATIENT
  Age: 73 Year
  Sex: Male
  Weight: 82.3 kg

DRUGS (11)
  1. OXALIPLATIN [Suspect]
     Indication: COLORECTAL CANCER
     Dosage: 181 MG Q2W - INTRAVENOUS NOS
     Route: 042
     Dates: start: 20040224, end: 20040224
  2. FLUOUROURACIL - SOLUTION - 2800 MG/M2 [Suspect]
     Dosage: 852 MG BOLUS  THEN 4112 MG AS 46 HOURS INFUSION Q2W - INTRAVENOUS NOS
     Route: 042
     Dates: start: 20040224, end: 20040226
  3. LEUCOVORIN - SOLUTION - 350 MG [Suspect]
     Dosage: 350 MG Q2W - INTRAVENOUS NOS
     Route: 042
     Dates: start: 20040224, end: 20040224
  4. AVASTIN [Suspect]
     Dosage: 5 MG/KG OVER 30-90 MINUTES IV INFUSION ON DAY 1 Q2W - INTRAVENOUS NOS
     Route: 042
     Dates: start: 20040209, end: 20040209
  5. WARFARIN SODIUM [Concomitant]
  6. SOTALOL HCL [Concomitant]
  7. PROCALAMINE   KENDALL [Concomitant]
  8. INTRALIPID 10% [Concomitant]
  9. OMEPRAZOLE [Concomitant]
  10. DEXTROPROPOXYPHENE HYDROCHLORIDE [Concomitant]
  11. PROCHLORPERAZINE EDISYLATE [Concomitant]

REACTIONS (14)
  - ANOREXIA [None]
  - ASTHENIA [None]
  - ATRIAL FIBRILLATION [None]
  - CONFUSIONAL STATE [None]
  - DIZZINESS [None]
  - GOUT [None]
  - HALLUCINATION, VISUAL [None]
  - HEART RATE ABNORMAL [None]
  - HYPOXIA [None]
  - MENTAL STATUS CHANGES [None]
  - METABOLIC DISORDER [None]
  - ORAL INTAKE REDUCED [None]
  - PAIN IN EXTREMITY [None]
  - PROTHROMBIN TIME ABNORMAL [None]
